FAERS Safety Report 20930358 (Version 1)
Quarter: 2022Q2

REPORT INFORMATION
  Report Type: Spontaneous
  Country: IT (occurrence: IT)
  Receive Date: 20220608
  Receipt Date: 20220608
  Transmission Date: 20220721
  Serious: Yes (Death, Other)
  Sender: FDA-Public Use
  Company Number: IT-SUN PHARMACEUTICAL INDUSTRIES LTD-2022RR-339976

PATIENT
  Age: 6 Year
  Sex: Female

DRUGS (1)
  1. NOREPINEPHRINE [Suspect]
     Active Substance: NOREPINEPHRINE
     Indication: Blood pressure abnormal
     Dosage: UNK, LOW-DOSE
     Route: 065

REACTIONS (3)
  - Cardiac arrest [Fatal]
  - Ventricular fibrillation [Unknown]
  - Condition aggravated [Unknown]
